FAERS Safety Report 12282790 (Version 1)
Quarter: 2016Q2

REPORT INFORMATION
  Report Type: Spontaneous
  Country: US (occurrence: US)
  Receive Date: 20160419
  Receipt Date: 20160419
  Transmission Date: 20160815
  Serious: Yes (Life-Threatening)
  Sender: FDA-Public Use
  Company Number: US-ASTRAZENECA-2005UW01837

PATIENT
  Age: 63 Year
  Sex: Male

DRUGS (7)
  1. VITAMINS NOS [Concomitant]
     Active Substance: VITAMINS
  2. CRESTOR [Suspect]
     Active Substance: ROSUVASTATIN CALCIUM
     Route: 048
     Dates: start: 2004, end: 2005
  3. BYDUREON [Suspect]
     Active Substance: EXENATIDE
     Indication: TYPE 2 DIABETES MELLITUS
     Route: 058
     Dates: start: 20160405
  4. LANTUS [Concomitant]
     Active Substance: INSULIN GLARGINE
     Route: 058
  5. ZETIA [Concomitant]
     Active Substance: EZETIMIBE
     Indication: GLYCOSYLATED HAEMOGLOBIN INCREASED
     Route: 048
  6. ATORVASTATIN [Concomitant]
     Active Substance: ATORVASTATIN
     Route: 048
  7. METFORMIN [Concomitant]
     Active Substance: METFORMIN HYDROCHLORIDE
     Dosage: 2 TO 3 500 MG PILLS A DAY

REACTIONS (9)
  - Myocardial infarction [Recovered/Resolved with Sequelae]
  - Hepatic enzyme increased [Not Recovered/Not Resolved]
  - Blood glucose abnormal [Not Recovered/Not Resolved]
  - Flatulence [Not Recovered/Not Resolved]
  - Tremor [Recovered/Resolved]
  - Abdominal discomfort [Not Recovered/Not Resolved]
  - Musculoskeletal pain [Recovered/Resolved]
  - Dyspepsia [Not Recovered/Not Resolved]
  - Muscular weakness [Unknown]

NARRATIVE: CASE EVENT DATE: 2004
